FAERS Safety Report 5588007-2 (Version None)
Quarter: 2008Q1

REPORT INFORMATION
  Report Type: 
  Country: None (occurrence: None)
  Receive Date: 20080111
  Receipt Date: 20071228
  Transmission Date: 20080703
  Serious: Yes (Other)
  Sender: FDA-Public Use
  Company Number: US-PFIZER INC-2008000309

PATIENT
  Sex: Female
  Weight: 56.7 kg

DRUGS (12)
  1. CHANTIX [Suspect]
     Indication: SMOKING CESSATION THERAPY
  2. LYRICA [Interacting]
  3. WELLBUTRIN [Interacting]
  4. FENTANYL [Concomitant]
  5. MAXALT [Concomitant]
  6. LORCET [Concomitant]
  7. VALIUM [Concomitant]
  8. ALL OTHER THERAPEUTIC PRODUCTS [Concomitant]
  9. VITAMINS [Concomitant]
  10. SEROQUEL [Concomitant]
  11. EXCEDRIN (MIGRAINE) [Concomitant]
  12. SERAX [Concomitant]

REACTIONS (2)
  - DRUG INTERACTION [None]
  - HALLUCINATION [None]
